FAERS Safety Report 14036349 (Version 1)
Quarter: 2017Q4

REPORT INFORMATION
  Report Type: Spontaneous
  Country: US (occurrence: US)
  Receive Date: 20171003
  Receipt Date: 20171003
  Transmission Date: 20180321
  Serious: No
  Sender: FDA-Public Use
  Company Number: US-ROCHE-1952704

PATIENT
  Age: 52 Year
  Sex: Female

DRUGS (3)
  1. COTELLIC [Suspect]
     Active Substance: COBIMETINIB
     Indication: MALIGNANT MELANOMA
     Dosage: 3 TABS FOR 21 DAYS ON, 7 DAYS OFF
     Route: 048
  2. ZOLPIDEM TARTRATE. [Concomitant]
     Active Substance: ZOLPIDEM TARTRATE
  3. COTELLIC [Suspect]
     Active Substance: COBIMETINIB
     Dosage: 1 TAB IN AM AND 1 TAB IN PM
     Route: 048

REACTIONS (2)
  - Fatigue [Recovering/Resolving]
  - Diarrhoea [Recovering/Resolving]
